FAERS Safety Report 19741426 (Version 1)
Quarter: 2021Q3

REPORT INFORMATION
  Report Type: Spontaneous
  Country: DE (occurrence: DE)
  Receive Date: 20210824
  Receipt Date: 20210824
  Transmission Date: 20211014
  Serious: Yes (Hospitalization)
  Sender: FDA-Public Use
  Company Number: DE-PFIZER INC-202101025563

PATIENT
  Age: 69 Year
  Sex: Female

DRUGS (19)
  1. CARBOPLATIN. [Suspect]
     Active Substance: CARBOPLATIN
     Dosage: 520 MG, SINGLE
     Route: 042
     Dates: start: 20210331, end: 20210331
  2. CARBOPLATIN. [Suspect]
     Active Substance: CARBOPLATIN
     Dosage: 586 MG, SINGLE
     Route: 042
     Dates: start: 20210217, end: 20210217
  3. DURVALUMAB. [Suspect]
     Active Substance: DURVALUMAB
     Indication: OVARIAN CANCER
     Route: 042
     Dates: start: 20210217, end: 20210512
  4. BEVACIZUMAB. [Suspect]
     Active Substance: BEVACIZUMAB
     Indication: OVARIAN CANCER
     Dosage: 990 MG, SINGLE
     Route: 042
     Dates: start: 20210421, end: 20210421
  5. PACLITAXEL. [Suspect]
     Active Substance: PACLITAXEL
     Dosage: 10 MG, SINGLE
     Route: 042
     Dates: start: 20210120, end: 20210120
  6. BEVACIZUMAB. [Suspect]
     Active Substance: BEVACIZUMAB
     Dosage: 990 MG, SINGLE
     Route: 042
     Dates: start: 20210331, end: 20210331
  7. CARBOPLATIN. [Suspect]
     Active Substance: CARBOPLATIN
     Dosage: 514 MG, SINGLE
     Route: 042
     Dates: start: 20210512, end: 20210512
  8. OLAPARIB. [Suspect]
     Active Substance: OLAPARIB
     Indication: OVARIAN CANCER
     Dosage: 300 MG, 2X/DAY (EVERY 12H)
     Route: 048
  9. BEVACIZUMAB. [Suspect]
     Active Substance: BEVACIZUMAB
     Dosage: 990 MG, SINGLE
     Route: 042
     Dates: start: 20210217, end: 20210217
  10. BEVACIZUMAB. [Suspect]
     Active Substance: BEVACIZUMAB
     Dosage: 990 MG, SINGLE
     Route: 042
     Dates: start: 20210512, end: 20210512
  11. PACLITAXEL. [Suspect]
     Active Substance: PACLITAXEL
     Indication: OVARIAN CANCER
     Dosage: 10 MG, SINGLE
     Route: 042
     Dates: start: 20210421, end: 20210421
  12. PACLITAXEL. [Suspect]
     Active Substance: PACLITAXEL
     Dosage: 10 MG, SINGLE
     Route: 042
     Dates: start: 20210310, end: 20210310
  13. AKYNZEO [Concomitant]
     Active Substance: NETUPITANT\PALONOSETRON HYDROCHLORIDE
     Indication: PROPHYLAXIS
     Dosage: 300 MG
     Route: 048
     Dates: start: 20210120
  14. PACLITAXEL. [Suspect]
     Active Substance: PACLITAXEL
     Dosage: 10 MG, SINGLE
     Route: 042
     Dates: start: 20210217, end: 20210217
  15. BEVACIZUMAB. [Suspect]
     Active Substance: BEVACIZUMAB
     Dosage: 990 MG, SINGLE
     Route: 042
     Dates: start: 20210310, end: 20210310
  16. CARBOPLATIN. [Suspect]
     Active Substance: CARBOPLATIN
     Indication: OVARIAN CANCER
     Dosage: 514 MG, SINGLE
     Route: 042
     Dates: start: 20210421, end: 20210421
  17. PACLITAXEL. [Suspect]
     Active Substance: PACLITAXEL
     Dosage: 10 MG, SINGLE
     Route: 042
     Dates: start: 20210331, end: 20210331
  18. CARBOPLATIN. [Suspect]
     Active Substance: CARBOPLATIN
     Dosage: 514 MG, SINGLE
     Route: 042
     Dates: start: 20210310, end: 20210310
  19. PACLITAXEL. [Suspect]
     Active Substance: PACLITAXEL
     Dosage: 10 MG, SINGLE
     Route: 042
     Dates: start: 20210512, end: 20210512

REACTIONS (1)
  - General physical health deterioration [Recovered/Resolved]

NARRATIVE: CASE EVENT DATE: 20210424
